FAERS Safety Report 6626455-X (Version None)
Quarter: 2010Q1

REPORT INFORMATION
  Report Type: 
  Country: None (occurrence: None)
  Receive Date: 20100310
  Receipt Date: 20100113
  Transmission Date: 20100710
  Serious: No
  Sender: FDA-Public Use
  Company Number: US-ABBOTT-10P-163-0619345-00

PATIENT
  Sex: Female
  Weight: 76.726 kg

DRUGS (1)
  1. LUPRON DEPOT [Suspect]
     Indication: PREMENSTRUAL SYNDROME
     Route: 058
     Dates: start: 20091218

REACTIONS (1)
  - MENSTRUATION IRREGULAR [None]
